FAERS Safety Report 5959386-9 (Version None)
Quarter: 2008Q4

REPORT INFORMATION
  Report Type: 
  Country: None (occurrence: None)
  Receive Date: 20081119
  Receipt Date: 20081119
  Transmission Date: 20090506
  Serious: No
  Sender: FDA-Public Use
  Company Number: None

PATIENT
  Age: 54 Year
  Sex: Female
  Weight: 95 kg

DRUGS (7)
  1. SODIUM NITROPRUSSIDE [Suspect]
     Indication: CARDIAC FAILURE CONGESTIVE
     Dosage: 0.5 - 2 MCG/KG/HR 6/27 @1900 - 6/28 @ 1332
     Dates: start: 20080627, end: 20080628
  2. FUROSEMIDE [Concomitant]
  3. DOBUTAMINE HCL [Concomitant]
  4. TACROLIMUS [Concomitant]
  5. ACYCLOVIR [Concomitant]
  6. CEFEPIME [Concomitant]
  7. LORAZEPAM [Concomitant]

REACTIONS (2)
  - DRUG TOXICITY [None]
  - VOMITING [None]
